FAERS Safety Report 4264451-0 (Version None)
Quarter: 2004Q1

REPORT INFORMATION
  Report Type: 
  Country: None (occurrence: None)
  Receive Date: 20040106
  Receipt Date: 20031210
  Transmission Date: 20041129
  Serious: Yes (Hospitalization)
  Sender: FDA-Public Use
  Company Number: DE-GLAXOSMITHKLINE-D0042634A

PATIENT
  Age: 30 Year
  Sex: Female

DRUGS (1)
  1. AUGMENTIN '125' [Suspect]
     Indication: JAW INFLAMMATION
     Dosage: 1TAB SINGLE DOSE
     Route: 048
     Dates: start: 20031208, end: 20031208

REACTIONS (8)
  - CHILLS [None]
  - DIARRHOEA [None]
  - GENERALISED ERYTHEMA [None]
  - PAIN [None]
  - PYREXIA [None]
  - SKIN OEDEMA [None]
  - SLEEP DISORDER [None]
  - TREMOR [None]
